FAERS Safety Report 14132057 (Version 2)
Quarter: 2017Q4

REPORT INFORMATION
  Report Type: Report from Study
  Country: None (occurrence: NL)
  Receive Date: 20171027
  Receipt Date: 20171104
  Transmission Date: 20180321
  Serious: Yes (Death)
  Sender: FDA-Public Use
  Company Number: NL-ABBVIE-17K-114-2142427-00

PATIENT
  Age: 77 Year
  Sex: Male

DRUGS (1)
  1. DUODOPA [Suspect]
     Active Substance: CARBIDOPA\LEVODOPA
     Indication: PARKINSON^S DISEASE
     Dosage: MORNING DOSE:  7  CONTINUOUS DOSE:?3.4     EXTRA DOSE:  2
     Route: 050
     Dates: start: 20130822

REACTIONS (4)
  - Fluid intake reduced [Fatal]
  - Blood pressure abnormal [Unknown]
  - Death [Fatal]
  - Hypophagia [Fatal]

NARRATIVE: CASE EVENT DATE: 20171022
